FAERS Safety Report 4320949-8 (Version None)
Quarter: 2004Q1

REPORT INFORMATION
  Report Type: 
  Country: None (occurrence: None)
  Receive Date: 20040318
  Receipt Date: 20040304
  Transmission Date: 20041129
  Serious: Yes (Death, Life-Threatening)
  Sender: FDA-Public Use
  Company Number: 205152

PATIENT
  Sex: Female

DRUGS (4)
  1. HERCEPTIN [Suspect]
     Indication: BREAST CANCER METASTATIC
     Dosage: 200 MG, SINGLE, INTRAVENOUS
     Route: 042
     Dates: start: 20040216, end: 20040216
  2. HERCEPTIN [Suspect]
     Indication: BREAST CANCER METASTATIC
     Dosage: 100 MG, INTRAVENOUS
     Route: 042
     Dates: start: 20040224, end: 20040224
  3. TAXOL [Concomitant]
  4. STEROID NOS (STEROID NOS) [Concomitant]

REACTIONS (2)
  - NEUTROPHIL COUNT DECREASED [None]
  - RENAL FAILURE ACUTE [None]
